FAERS Safety Report 6753930-X (Version None)
Quarter: 2010Q2

REPORT INFORMATION
  Report Type: 
  Country: None (occurrence: None)
  Receive Date: 20100603
  Receipt Date: 20100528
  Transmission Date: 20101027
  Serious: Yes (Death, Hospitalization)
  Sender: FDA-Public Use
  Company Number: A0788062A

PATIENT
  Age: 87 Year
  Sex: Male
  Weight: 88.6 kg

DRUGS (11)
  1. AVANDIA [Suspect]
     Indication: DIABETES MELLITUS
     Dosage: 4MG TWICE PER DAY
     Route: 048
     Dates: start: 20011022, end: 20070704
  2. AVANDAMET [Suspect]
     Indication: DIABETES MELLITUS
     Route: 048
     Dates: start: 20051101, end: 20060101
  3. GLIPIZIDE [Concomitant]
  4. COZAAR [Concomitant]
  5. JANUVIA [Concomitant]
  6. DIGOXIN [Concomitant]
  7. LASIX [Concomitant]
  8. COUMADIN [Concomitant]
  9. NORVASC [Concomitant]
  10. SYNTHROID [Concomitant]
  11. METFORMIN [Concomitant]
     Dates: end: 20070601

REACTIONS (3)
  - ARTERIOSCLEROSIS CORONARY ARTERY [None]
  - CARDIAC ARREST [None]
  - CARDIAC FAILURE [None]
